FAERS Safety Report 18464877 (Version 45)
Quarter: 2025Q2

REPORT INFORMATION
  Report Type: Report from Study
  Country: DE (occurrence: DE)
  Receive Date: 20201104
  Receipt Date: 20250516
  Transmission Date: 20250717
  Serious: Yes (Life-Threatening, Hospitalization, Other)
  Sender: PFIZER
  Company Number: DE-PFM-2020-16998

PATIENT
  Age: 60 Year
  Sex: Male
  Weight: 96 kg

DRUGS (17)
  1. BRAFTOVI [Suspect]
     Active Substance: ENCORAFENIB
     Indication: Malignant melanoma
     Dosage: 450 MG, QD (1/DAY)
     Route: 048
     Dates: start: 20200622
  2. BRAFTOVI [Suspect]
     Active Substance: ENCORAFENIB
     Dosage: 450 MG, QD (1/DAY)
     Route: 048
     Dates: start: 20200622, end: 20200827
  3. BRAFTOVI [Suspect]
     Active Substance: ENCORAFENIB
     Dosage: 300 MG, QD (1/DAY)
     Route: 048
     Dates: start: 20201018, end: 20210430
  4. MEKTOVI [Suspect]
     Active Substance: BINIMETINIB
     Indication: Malignant melanoma
     Dosage: 45 MG, BID (2/DAY)
     Route: 048
     Dates: start: 20200622
  5. MEKTOVI [Suspect]
     Active Substance: BINIMETINIB
     Dosage: 45 MG, BID (2/DAY)
     Route: 048
     Dates: start: 20200622, end: 20200827
  6. MEKTOVI [Suspect]
     Active Substance: BINIMETINIB
     Dosage: 15 MG, BID (2/DAY)
     Route: 048
     Dates: start: 20210108
  7. ASPIRIN [Concomitant]
     Active Substance: ASPIRIN
     Route: 065
     Dates: start: 20150101
  8. METOPROLOL [Concomitant]
     Active Substance: METOPROLOL
     Route: 065
     Dates: start: 20150101, end: 20200825
  9. ALLOPURINOL [Concomitant]
     Active Substance: ALLOPURINOL
     Route: 065
     Dates: start: 20100101
  10. CANDESARTAN [Concomitant]
     Active Substance: CANDESARTAN
     Route: 065
     Dates: start: 20150101
  11. ATORVASTATIN [Concomitant]
     Active Substance: ATORVASTATIN
     Indication: Prophylaxis
     Route: 065
     Dates: start: 20190101, end: 20200823
  12. MAGNESIUM [Concomitant]
     Active Substance: MAGNESIUM
     Indication: Prophylaxis
     Route: 065
     Dates: start: 20150101, end: 20200916
  13. TAVOR [Concomitant]
     Indication: Prophylaxis
     Route: 065
     Dates: start: 20200829, end: 20200829
  14. FONDAPARINUX [Concomitant]
     Active Substance: FONDAPARINUX
     Indication: Prophylaxis
     Route: 065
     Dates: start: 20200829, end: 20200831
  15. FONDAPARINUX [Concomitant]
     Active Substance: FONDAPARINUX
     Route: 065
     Dates: start: 20200902, end: 20200915
  16. HEPARIN [Concomitant]
     Active Substance: HEPARIN SODIUM
     Indication: Prophylaxis
     Route: 065
     Dates: start: 20200828, end: 20200828
  17. SALINE [Concomitant]
     Active Substance: SODIUM CHLORIDE
     Route: 065
     Dates: start: 20200829, end: 20200910

REACTIONS (44)
  - Cardiac failure [Recovered/Resolved]
  - Sinus bradycardia [Recovered/Resolved]
  - General physical health deterioration [Recovered/Resolved]
  - Angina pectoris [Recovered/Resolved]
  - General physical health deterioration [Recovered/Resolved]
  - Abdominal pain [Recovered/Resolved]
  - Amylase increased [Not Recovered/Not Resolved]
  - Hypertension [Recovered/Resolved]
  - Cardiac arrest [Recovered/Resolved]
  - Syncope [Recovered/Resolved]
  - Nausea [Recovered/Resolved]
  - Nausea [Recovered/Resolved]
  - Diarrhoea [Recovered/Resolved]
  - Anaemia [Not Recovered/Not Resolved]
  - Abdominal pain [Recovered/Resolved]
  - Iron deficiency [Not Recovered/Not Resolved]
  - Aspartate aminotransferase increased [Recovered/Resolved]
  - Alanine aminotransferase increased [Recovered/Resolved]
  - Diarrhoea [Recovered/Resolved]
  - Diarrhoea [Recovered/Resolved]
  - Decreased appetite [Recovered/Resolved]
  - Gastrointestinal disorder [Recovered/Resolved]
  - Gamma-glutamyltransferase increased [Not Recovered/Not Resolved]
  - Decreased appetite [Recovered/Resolved]
  - Decreased appetite [Recovered/Resolved]
  - Gastrointestinal disorder [Recovered/Resolved]
  - Dyspnoea [Recovered/Resolved]
  - Hypokalaemia [Recovered/Resolved]
  - Infection [Recovered/Resolved]
  - Folate deficiency [Not Recovered/Not Resolved]
  - Localised oedema [Not Recovered/Not Resolved]
  - Back pain [Not Recovered/Not Resolved]
  - Oropharyngeal pain [Recovered/Resolved]
  - Dizziness [Recovered/Resolved]
  - Flushing [Recovered/Resolved]
  - Pyrexia [Recovered/Resolved]
  - Pyrexia [Recovered/Resolved]
  - Pyrexia [Recovered/Resolved]
  - Pyrexia [Recovered/Resolved]
  - Pain in extremity [Not Recovered/Not Resolved]
  - Blood creatinine increased [Not Recovered/Not Resolved]
  - Chest discomfort [Not Recovered/Not Resolved]
  - Wrong dose [Unknown]
  - Product use issue [Unknown]

NARRATIVE: CASE EVENT DATE: 20200626
